FAERS Safety Report 21159601 (Version 3)
Quarter: 2022Q3

REPORT INFORMATION
  Report Type: Report from Study
  Country: ES (occurrence: ES)
  Receive Date: 20220802
  Receipt Date: 20220922
  Transmission Date: 20221027
  Serious: Yes (Hospitalization, Other)
  Sender: FDA-Public Use
  Company Number: ES-CC-90011-ST-002-3521002-20210512-0001SG

PATIENT
  Age: 69 Year
  Sex: Male
  Weight: 67 kg

DRUGS (9)
  1. NIVOLUMAB [Suspect]
     Active Substance: NIVOLUMAB
     Indication: Squamous cell carcinoma of lung
     Route: 042
     Dates: start: 20210504, end: 20210504
  2. ACETAMINOPHEN [Concomitant]
     Active Substance: ACETAMINOPHEN
     Indication: Pyrexia
     Route: 048
     Dates: start: 20210504, end: 20210504
  3. DUPHALAC [Concomitant]
     Active Substance: LACTULOSE
     Indication: Constipation prophylaxis
     Dosage: 10 G X 1 X 1 DAYS
     Route: 048
     Dates: start: 20210430, end: 20210511
  4. GABAPENTIN [Concomitant]
     Active Substance: GABAPENTIN
     Indication: Cancer pain
     Dosage: 300 MG X 3 X 1 DAYS
     Route: 048
     Dates: start: 20210430, end: 20210512
  5. METASEDIN [Concomitant]
     Indication: Cancer pain
     Dosage: 10 MG X 2 X 1 DAYS
     Route: 048
     Dates: start: 20210430, end: 20210511
  6. METASEDIN [Concomitant]
     Indication: Flank pain
     Dosage: 10 MG X 2 X 1 DAYS
     Route: 048
     Dates: start: 20210531
  7. MORPHINE SULFATE [Concomitant]
     Active Substance: MORPHINE SULFATE
     Indication: Cancer pain
     Dosage: 30 MG X 2 X 1 DAYS
     Route: 048
     Dates: start: 20210504, end: 20210506
  8. PRIMPERAN [Concomitant]
     Active Substance: METOCLOPRAMIDE HYDROCHLORIDE
     Indication: Prophylaxis of nausea and vomiting
     Dosage: 10 MG X 3 X 1 DAYS
     Route: 048
     Dates: start: 20210504, end: 20210506
  9. LIDOCAINE [Concomitant]
     Active Substance: LIDOCAINE
     Indication: Cancer pain
     Dosage: 700 MG X 1 X 1 DAYS
     Route: 048
     Dates: start: 20210430, end: 20210511

REACTIONS (1)
  - Immune-mediated nephritis [Not Recovered/Not Resolved]

NARRATIVE: CASE EVENT DATE: 20210511
